FAERS Safety Report 7799375-5 (Version None)
Quarter: 2011Q4

REPORT INFORMATION
  Report Type: 
  Country: None (occurrence: None)
  Receive Date: 20111004
  Receipt Date: 20110922
  Transmission Date: 20120403
  Serious: Yes (Other)
  Sender: FDA-Public Use
  Company Number: TPA2011A05933

PATIENT
  Age: 68 Year
  Sex: Male
  Weight: 98.4306 kg

DRUGS (6)
  1. TENORMIN [Concomitant]
  2. ASPIRIN [Concomitant]
  3. LISINOPRIL [Concomitant]
  4. GLUCOVANCE [Concomitant]
  5. ACTOS [Suspect]
     Indication: DIABETES MELLITUS
     Dosage: 30 MG, 1 IN 1 D, PER ORAL
     Route: 048
     Dates: end: 20110920
  6. VITAMIN D [Concomitant]

REACTIONS (2)
  - BLADDER CANCER [None]
  - RENAL CYST [None]
